FAERS Safety Report 18070245 (Version 1)
Quarter: 2020Q3

REPORT INFORMATION
  Report Type: Other
  Country: JP (occurrence: JP)
  Receive Date: 20200727
  Receipt Date: 20200727
  Transmission Date: 20201103
  Serious: Yes (Other)
  Sender: FDA-Public Use
  Company Number: JP-ROCHE-2646450

PATIENT
  Age: 65 Year
  Sex: Female

DRUGS (15)
  1. ADALIMUMAB [Suspect]
     Active Substance: ADALIMUMAB
     Indication: RHEUMATOID ARTHRITIS
     Route: 065
  2. BARICITINIB [Concomitant]
     Active Substance: BARICITINIB
  3. AMBROXOL [Concomitant]
     Active Substance: AMBROXOL
  4. TACROLIMUS. [Concomitant]
     Active Substance: TACROLIMUS
  5. CANDESARTAN CILEXETIL. [Concomitant]
     Active Substance: CANDESARTAN CILEXETIL
  6. CEVIMELINE. [Concomitant]
     Active Substance: CEVIMELINE
  7. SALAZOSULFAPYRIDINE [Concomitant]
     Active Substance: SULFASALAZINE
  8. ELDECALCITOL [Concomitant]
     Active Substance: ELDECALCITOL
  9. REBAMIPIDE [Concomitant]
     Active Substance: REBAMIPIDE
  10. PREDNISOLONE. [Concomitant]
     Active Substance: PREDNISOLONE
  11. METHOTREXATE. [Concomitant]
     Active Substance: METHOTREXATE
  12. TOCILIZUMAB. [Suspect]
     Active Substance: TOCILIZUMAB
     Indication: RHEUMATOID ARTHRITIS
     Route: 058
  13. TOCILIZUMAB. [Suspect]
     Active Substance: TOCILIZUMAB
     Indication: RHEUMATOID ARTHRITIS
  14. ABATACEPT [Concomitant]
     Active Substance: ABATACEPT
  15. AMLODIPINE BESYLATE. [Concomitant]
     Active Substance: AMLODIPINE BESYLATE

REACTIONS (6)
  - Hepatic function abnormal [Recovering/Resolving]
  - Bone marrow failure [Recovering/Resolving]
  - Pemphigoid [Unknown]
  - Systemic lupus erythematosus [Unknown]
  - Pancytopenia [Recovering/Resolving]
  - Hypocomplementaemia [Recovering/Resolving]
